FAERS Safety Report 10037705 (Version 1)
Quarter: 2014Q1

REPORT INFORMATION
  Report Type: Spontaneous
  Country: US (occurrence: US)
  Receive Date: 20140326
  Receipt Date: 20140326
  Transmission Date: 20141002
  Serious: No
  Sender: FDA-Public Use
  Company Number: US-PFIZER INC-2014085607

PATIENT
  Age: 39 Year
  Sex: Female

DRUGS (2)
  1. CHANTIX [Suspect]
     Dosage: UNK
     Dates: start: 201401
  2. CHAMPIX [Suspect]
     Dosage: UNK
     Dates: start: 201401

REACTIONS (1)
  - Feeling abnormal [Unknown]
